FAERS Safety Report 25204599 (Version 1)
Quarter: 2025Q2

REPORT INFORMATION
  Report Type: Spontaneous
  Country: DK (occurrence: DK)
  Receive Date: 20250416
  Receipt Date: 20250416
  Transmission Date: 20250716
  Serious: Yes (Other)
  Sender: GENUS LIFESCIENCES
  Company Number: DK-Genus_Lifesciences-USA-ALL0580202500123

PATIENT
  Age: 16 Year

DRUGS (1)
  1. ASPIRIN\CARISOPRODOL [Suspect]
     Active Substance: ASPIRIN\CARISOPRODOL
     Indication: Substance abuse
     Route: 048
     Dates: start: 2024, end: 2024

REACTIONS (12)
  - Chest pain [Recovered/Resolved]
  - Poisoning [Recovered/Resolved]
  - Cyanosis [Recovered/Resolved]
  - Rash [Recovered/Resolved]
  - Miosis [Recovered/Resolved]
  - Mydriasis [Recovered/Resolved]
  - Asthenia [Recovered/Resolved]
  - Slow speech [Recovered/Resolved]
  - Drug dependence [Not Recovered/Not Resolved]
  - Leukopenia [Recovered/Resolved]
  - Influenza like illness [Recovered/Resolved]
  - Fatigue [Recovered/Resolved]

NARRATIVE: CASE EVENT DATE: 20240101
